FAERS Safety Report 7859322-4 (Version None)
Quarter: 2011Q4

REPORT INFORMATION
  Report Type: 
  Country: None (occurrence: None)
  Receive Date: 20111027
  Receipt Date: 20111021
  Transmission Date: 20120403
  Serious: Yes (Death, Hospitalization, Other)
  Sender: FDA-Public Use
  Company Number: US-ASTELLAS-2011US000636

PATIENT

DRUGS (6)
  1. MYCOPHENOLATE MOFETIL (CELLCEPT) [Concomitant]
     Indication: PRODUCT USED FOR UNKNOWN INDICATION
     Dosage: 1000 MG, BID
     Route: 065
  2. PROGRAF [Suspect]
     Dosage: 1.5 MG, BID
     Route: 048
     Dates: start: 20090821, end: 20100222
  3. PROGRAF [Suspect]
     Dosage: 1 MG, BID
     Route: 048
     Dates: start: 20100223, end: 20100527
  4. PROGRAF [Suspect]
     Dosage: 1.5 MG, BID
     Route: 048
     Dates: start: 20100528, end: 20101006
  5. NORVASC [Suspect]
     Indication: HYPERTENSION
     Dosage: UNK
     Route: 065
     Dates: start: 20100223
  6. PROGRAF [Suspect]
     Indication: RENAL TRANSPLANT
     Dosage: 1 MG, BID
     Route: 048
     Dates: start: 20080820, end: 20090820

REACTIONS (38)
  - PULMONARY OEDEMA [None]
  - CEREBROVASCULAR ACCIDENT [None]
  - URINARY TRACT INFECTION [None]
  - ASTHENIA [None]
  - DIABETIC NEPHROPATHY [None]
  - INFLUENZA [None]
  - DIABETES MELLITUS [None]
  - RENAL FAILURE ACUTE [None]
  - HYPERTENSION [None]
  - INCISIONAL HERNIA [None]
  - HERPES ZOSTER [None]
  - ASCITES [None]
  - CARDIAC FAILURE CONGESTIVE [None]
  - PLEURAL EFFUSION [None]
  - LETHARGY [None]
  - HAEMORRHAGE [None]
  - SHOCK [None]
  - PYREXIA [None]
  - SUBDURAL HAEMATOMA [None]
  - RENAL GRAFT LOSS [None]
  - RENAL TUBULAR NECROSIS [None]
  - OBESITY [None]
  - CONFUSIONAL STATE [None]
  - UPPER RESPIRATORY TRACT INFECTION [None]
  - HICCUPS [None]
  - DIZZINESS [None]
  - SLEEP APNOEA SYNDROME [None]
  - PULMONARY HYPERTENSION [None]
  - HEPATIC STEATOSIS [None]
  - COMA [None]
  - ENCEPHALOPATHY [None]
  - HYPOTENSION [None]
  - ORTHOSTATIC HYPOTENSION [None]
  - COUGH [None]
  - GLOMERULONEPHROPATHY [None]
  - FALL [None]
  - LEUKOCYTURIA [None]
  - OEDEMA PERIPHERAL [None]
